FAERS Safety Report 20607506 (Version 11)
Quarter: 2022Q4

REPORT INFORMATION
  Report Type: Report from Study
  Country: US (occurrence: US)
  Receive Date: 20220317
  Receipt Date: 20221111
  Transmission Date: 20230113
  Serious: No
  Sender: FDA-Public Use
  Company Number: US-NOVARTISTESTPH-NVSC2022US059218

PATIENT
  Age: 48 Year
  Sex: Female

DRUGS (4)
  1. COSENTYX [Suspect]
     Active Substance: SECUKINUMAB
     Indication: Psoriasis
     Dosage: 300 MG, QMO
     Route: 058
     Dates: start: 20220312, end: 20220312
  2. COSENTYX [Suspect]
     Active Substance: SECUKINUMAB
     Dosage: 300 MG, (ONCE A WEEK FOR 5 WEEKS THEN ONCE)
     Route: 058
  3. COSENTYX [Suspect]
     Active Substance: SECUKINUMAB
     Dosage: 300 MG, QMO
     Route: 058
  4. REMICADE [Concomitant]
     Active Substance: INFLIXIMAB
     Indication: Product used for unknown indication
     Dosage: UNK
     Route: 065

REACTIONS (16)
  - Abdominal pain upper [Recovered/Resolved]
  - Injection site haemorrhage [Unknown]
  - Decreased appetite [Unknown]
  - Alopecia [Unknown]
  - Injection site pain [Unknown]
  - Weight decreased [Unknown]
  - Injection site bruising [Unknown]
  - COVID-19 [Unknown]
  - Fatigue [Unknown]
  - Psoriasis [Unknown]
  - Swelling [Unknown]
  - Nail hypertrophy [Unknown]
  - Skin fissures [Unknown]
  - Pain in extremity [Unknown]
  - Arthralgia [Unknown]
  - Drug ineffective [Unknown]

NARRATIVE: CASE EVENT DATE: 20220312
